FAERS Safety Report 10341138 (Version 2)
Quarter: 2014Q3

REPORT INFORMATION
  Report Type: Spontaneous
  Country: US (occurrence: US)
  Receive Date: 20140724
  Receipt Date: 20140724
  Transmission Date: 20150326
  Serious: Yes (Disabling)
  Sender: FDA-Public Use
  Company Number: US-ACTELION-A-US2014-100556

PATIENT
  Age: 69 Year
  Sex: Male

DRUGS (2)
  1. OPSUMIT [Suspect]
     Active Substance: MACITENTAN
     Indication: COR PULMONALE CHRONIC
     Dosage: 10 MG, UNK
     Route: 048
     Dates: start: 201312
  2. REMODULIN [Suspect]
     Active Substance: TREPROSTINIL
     Dosage: 0.022ML/MIN
     Dates: start: 20140506, end: 20140623

REACTIONS (2)
  - Deafness transitory [Recovered/Resolved]
  - Ear discomfort [Recovered/Resolved]

NARRATIVE: CASE EVENT DATE: 20140529
